FAERS Safety Report 12552571 (Version 2)
Quarter: 2016Q3

REPORT INFORMATION
  Report Type: Spontaneous
  Country: JP (occurrence: JP)
  Receive Date: 20160713
  Receipt Date: 20160801
  Transmission Date: 20161109
  Serious: Yes (Other)
  Sender: FDA-Public Use
  Company Number: PHJP2016JP019226

PATIENT
  Age: 74 Year
  Sex: Female

DRUGS (3)
  1. VOLTAREN SUP [Suspect]
     Active Substance: DICLOFENAC SODIUM
     Indication: OSTEOARTHRITIS
     Dosage: 50 MG, UNK
     Route: 054
     Dates: start: 201105, end: 20160602
  2. SUVENYL [Suspect]
     Active Substance: HYALURONATE SODIUM
     Indication: PRODUCT USED FOR UNKNOWN INDICATION
     Dosage: 2.5 MG, UNK
     Route: 014
     Dates: start: 201105
  3. SUVENYL [Suspect]
     Active Substance: HYALURONATE SODIUM
     Dosage: 2.5 MG, UNK
     Route: 014
     Dates: start: 20160602, end: 20160602

REACTIONS (4)
  - Joint swelling [Recovered/Resolved]
  - Anaphylactic reaction [Recovered/Resolved]
  - Pruritus generalised [Recovered/Resolved]
  - Palpitations [Recovered/Resolved]

NARRATIVE: CASE EVENT DATE: 20160602
